FAERS Safety Report 7110860-1 (Version None)
Quarter: 2010Q4

REPORT INFORMATION
  Report Type: 
  Country: None (occurrence: None)
  Receive Date: 20101116
  Receipt Date: 20101116
  Transmission Date: 20110411
  Serious: No
  Sender: FDA-Public Use
  Company Number: None

PATIENT
  Sex: Female
  Weight: 77.1115 kg

DRUGS (1)
  1. LEVAQUIN [Suspect]
     Indication: PNEUMONIA
     Dosage: 750 MG 2 DAYS PO 500 MG 8 DAYS PO
     Route: 048
     Dates: start: 20100226, end: 20100228

REACTIONS (1)
  - PAIN IN EXTREMITY [None]
